FAERS Safety Report 15893095 (Version 1)
Quarter: 2019Q1

REPORT INFORMATION
  Report Type: Report from Study
  Country: US (occurrence: US)
  Receive Date: 20190130
  Receipt Date: 20190130
  Transmission Date: 20190417
  Serious: No
  Sender: FDA-Public Use
  Company Number: US-EXELIXIS-CABO-18015888

PATIENT
  Sex: Male

DRUGS (12)
  1. JANUVIA [Concomitant]
     Active Substance: SITAGLIPTIN PHOSPHATE
  2. OXYCODONE [Concomitant]
     Active Substance: OXYCODONE
  3. MULTIVIT [Concomitant]
     Active Substance: VITAMINS
  4. CABOMETYX [Suspect]
     Active Substance: CABOZANTINIB S-MALATE
     Dosage: 20 MG, QD
     Route: 048
     Dates: start: 2018
  5. PREDNISONE. [Concomitant]
     Active Substance: PREDNISONE
  6. TRAZODONE [Concomitant]
     Active Substance: TRAZODONE HYDROCHLORIDE
  7. CABOMETYX [Suspect]
     Active Substance: CABOZANTINIB S-MALATE
     Indication: HEPATOCELLULAR CARCINOMA
     Dosage: 20 MG, QD
     Route: 048
     Dates: start: 20180717, end: 2018
  8. TAMSULOSIN [Concomitant]
     Active Substance: TAMSULOSIN
  9. FENTANYL. [Concomitant]
     Active Substance: FENTANYL
  10. GABAPENTIN. [Concomitant]
     Active Substance: GABAPENTIN
  11. IBUPROFEN. [Concomitant]
     Active Substance: IBUPROFEN
  12. UNISOM SLEEP [Concomitant]
     Active Substance: DOXYLAMINE SUCCINATE

REACTIONS (4)
  - Swollen tongue [Unknown]
  - Off label use [Unknown]
  - Nerve compression [Not Recovered/Not Resolved]
  - Product dose omission [Unknown]

NARRATIVE: CASE EVENT DATE: 2018
